FAERS Safety Report 8966941 (Version 1)
Quarter: 2012Q4

REPORT INFORMATION
  Report Type: 
  Country: US (occurrence: US)
  Receive Date: 20121214
  Receipt Date: 20121214
  Transmission Date: 20130627
  Serious: Yes (Hospitalization, Disabling, Other)
  Sender: FDA-Public Use
  Company Number: US-009507513-1109USA01908

PATIENT

DRUGS (7)
  1. FOSAMAX [Suspect]
     Indication: OSTEOPOROSIS POSTMENOPAUSAL
     Route: 048
     Dates: start: 1995
  2. FOSAMAX [Suspect]
     Indication: OSTEOPENIA
     Dosage: 70 mg, QW
     Route: 048
     Dates: end: 20061225
  3. FOSAMAX PLUS D [Suspect]
     Indication: OSTEOPOROSIS POSTMENOPAUSAL
     Dosage: 70/2800
     Route: 048
     Dates: start: 20061226, end: 200910
  4. FOSAMAX PLUS D [Suspect]
     Indication: OSTEOPENIA
  5. ACTONEL [Suspect]
     Indication: OSTEOPENIA
     Dosage: 70 mg, UNK
     Route: 048
     Dates: start: 2005, end: 2006
  6. CALCIUM (UNSPECIFIED) [Concomitant]
     Indication: OSTEOPOROSIS POSTMENOPAUSAL
     Dosage: 1200 mg, UNK
     Route: 048
  7. CLARITIN [Concomitant]
     Route: 048

REACTIONS (40)
  - Fibula fracture [Recovered/Resolved]
  - Tibia fracture [Recovered/Resolved]
  - External fixation of fracture [Recovered/Resolved]
  - Bursitis [Unknown]
  - Synovitis [Unknown]
  - Patellofemoral pain syndrome [Unknown]
  - Meniscus injury [Unknown]
  - Surgical failure [Unknown]
  - Deafness neurosensory [Unknown]
  - Presbyacusis [Unknown]
  - Deafness traumatic [Unknown]
  - Device failure [Unknown]
  - Myocardial infarction [Unknown]
  - Tooth disorder [Unknown]
  - Postmenopausal haemorrhage [Unknown]
  - Local swelling [Unknown]
  - Fall [Unknown]
  - Ecchymosis [Unknown]
  - Ligament sprain [Unknown]
  - Tinea pedis [Unknown]
  - Lower limb fracture [Unknown]
  - Arthropathy [Unknown]
  - Cerumen impaction [Unknown]
  - Acute sinusitis [Unknown]
  - Type V hyperlipidaemia [Unknown]
  - Polyp [Unknown]
  - Haemorrhoids [Unknown]
  - Palpitations [Unknown]
  - Bursitis [Unknown]
  - Fatigue [Unknown]
  - Essential hypertension [Unknown]
  - Cerumen impaction [Unknown]
  - Diverticulum [Unknown]
  - Mucosal membrane hyperplasia [Unknown]
  - Chest discomfort [Unknown]
  - Otitis externa [Unknown]
  - Dizziness [Unknown]
  - Flatulence [Unknown]
  - Vertigo [Unknown]
  - Femur fracture [Unknown]
